FAERS Safety Report 15159187 (Version 6)
Quarter: 2019Q2

REPORT INFORMATION
  Report Type: Spontaneous
  Country: US (occurrence: US)
  Receive Date: 20180718
  Receipt Date: 20190424
  Transmission Date: 20190711
  Serious: Yes (Death, Life-Threatening, Hospitalization)
  Sender: FDA-Public Use
  Company Number: US-CELGENEUS-USA-20180610871

PATIENT
  Age: 66 Year
  Sex: Male
  Weight: 75 kg

DRUGS (41)
  1. POTASSIUM CHLORIDE. [Concomitant]
     Active Substance: POTASSIUM CHLORIDE
     Indication: PROPHYLAXIS
     Dosage: 40-60UG
     Route: 048
     Dates: start: 20180701
  2. BISACODYL. [Concomitant]
     Active Substance: BISACODYL
     Indication: CONSTIPATION PROPHYLAXIS
     Dosage: 10 MILLIGRAM
     Route: 054
     Dates: start: 20180702
  3. SENNA ALEXANDRINA [Concomitant]
     Active Substance: SENNA LEAF
     Indication: CONSTIPATION PROPHYLAXIS
     Dosage: 176 MILLIGRAM
     Route: 048
     Dates: start: 20180705
  4. MAGNESIUM SULFATE. [Concomitant]
     Active Substance: MAGNESIUM SULFATE
     Indication: PROPHYLAXIS
     Dosage: 2 GRAM
     Route: 048
     Dates: start: 20180701
  5. ELECTROLYTES NOS [Concomitant]
     Active Substance: ELECTROLYTES NOS
     Indication: PROPHYLAXIS AGAINST DEHYDRATION
     Dosage: 1000 MILLILITER
     Route: 041
     Dates: start: 20180704
  6. AMIKACIN. [Concomitant]
     Active Substance: AMIKACIN
     Indication: INFECTION PROPHYLAXIS
     Dosage: 1000 MILLIGRAM
     Route: 041
     Dates: start: 20180703, end: 20180707
  7. FENTANYL. [Concomitant]
     Active Substance: FENTANYL
     Indication: PAIN
     Dosage: 25-50 MCG
     Route: 041
     Dates: start: 20180703, end: 20180704
  8. CALCIUM CHLORIDE. [Concomitant]
     Active Substance: CALCIUM CHLORIDE
     Dosage: 24000 MILLIGRAM
     Route: 041
     Dates: start: 20180708, end: 20180708
  9. NORMAL SALINE [Concomitant]
     Active Substance: SODIUM CHLORIDE
     Indication: PROPHYLAXIS
     Dosage: 16.8 LITERS
     Route: 041
     Dates: start: 20180528, end: 20180603
  10. ALBUTEROL. [Concomitant]
     Active Substance: ALBUTEROL
     Indication: DYSPNOEA
     Route: 055
     Dates: start: 20180418
  11. FOLIC ACID. [Concomitant]
     Active Substance: FOLIC ACID
     Indication: SUPPLEMENTATION THERAPY
     Dosage: 800 MICROGRAM
     Route: 048
     Dates: start: 20180201
  12. DOCUSATE [Concomitant]
     Active Substance: DOCUSATE
     Indication: CONSTIPATION PROPHYLAXIS
     Dosage: 200 MILLIGRAM
     Route: 048
     Dates: start: 20180130, end: 20180704
  13. K-PHOS NEUTRAL [Concomitant]
     Active Substance: POTASSIUM PHOSPHATE\SODIUM PHOSPHATE
     Indication: PROPHYLAXIS
     Dosage: 1-2 TABLETS
     Route: 048
     Dates: start: 20180705, end: 20180706
  14. LEVOFLOXACIN. [Concomitant]
     Active Substance: LEVOFLOXACIN
     Indication: INFECTION PROPHYLAXIS
     Dosage: 500 MILLIGRAM
     Route: 048
     Dates: start: 20180704
  15. TUMS [Concomitant]
     Active Substance: CALCIUM CARBONATE
     Indication: PROPHYLAXIS
     Route: 048
     Dates: start: 20180418
  16. FUROSEMIDE. [Concomitant]
     Active Substance: FUROSEMIDE
     Indication: OEDEMA PERIPHERAL
     Dosage: 20 MILLIGRAM
     Route: 041
     Dates: start: 20180703, end: 20180707
  17. FUROSEMIDE. [Concomitant]
     Active Substance: FUROSEMIDE
     Indication: PULMONARY OEDEMA
  18. PANTOPRAZOLE [Concomitant]
     Active Substance: PANTOPRAZOLE
     Indication: GASTROOESOPHAGEAL REFLUX PROPHYLAXIS
     Dosage: 40 MILLIGRAM
     Route: 041
     Dates: start: 20180704
  19. COPPER GLUCONATE [Concomitant]
     Active Substance: COPPER GLUCONATE
     Indication: COPPER DEFICIENCY
     Dosage: 4 MILLIGRAM
     Route: 048
     Dates: start: 20180220
  20. VITAMIN B6 [Concomitant]
     Active Substance: PYRIDOXINE HYDROCHLORIDE
     Indication: SUPPLEMENTATION THERAPY
     Dosage: 25 MILLIGRAM
     Route: 048
     Dates: start: 20180523
  21. ONDANSETRON [Concomitant]
     Active Substance: ONDANSETRON
     Indication: PROPHYLAXIS OF NAUSEA AND VOMITING
     Dosage: 4-16MG
     Route: 048
     Dates: start: 20180604
  22. PROCHLORAZINE [Concomitant]
     Indication: PROPHYLAXIS OF NAUSEA AND VOMITING
     Dosage: 40 MILLIGRAM
     Route: 048
     Dates: start: 20180701, end: 20180704
  23. NOREPINEPHRINE. [Concomitant]
     Active Substance: NOREPINEPHRINE
     Indication: HYPOTENSION
     Dosage: 0.5-30 MCG/MIN
     Route: 041
     Dates: start: 20180704
  24. CALCIUM CHLORIDE. [Concomitant]
     Active Substance: CALCIUM CHLORIDE
     Indication: PROPHYLAXIS
     Dosage: 1000 MILLIGRAM
     Route: 041
     Dates: start: 20180705, end: 20180705
  25. VITAMIN D3 [Concomitant]
     Active Substance: CHOLECALCIFEROL
     Indication: SUPPLEMENTATION THERAPY
     Dosage: 2000 IU (INTERNATIONAL UNIT)
     Route: 048
     Dates: start: 20170712
  26. JADENU [Concomitant]
     Active Substance: DEFERASIROX
     Indication: PROPHYLAXIS
     Dosage: 180 MILLIGRAM
     Route: 048
     Dates: start: 20180330
  27. LEVOTHYROXINE. [Concomitant]
     Active Substance: LEVOTHYROXINE
     Indication: HYPOTHYROIDISM
     Dosage: 200 MICROGRAM
     Route: 048
     Dates: start: 20180220
  28. CLARITIN [Concomitant]
     Active Substance: LORATADINE
     Indication: RHINITIS ALLERGIC
     Route: 048
     Dates: start: 20180411
  29. FUROSEMIDE. [Concomitant]
     Active Substance: FUROSEMIDE
     Indication: PROPHYLAXIS
     Dosage: 40 MILLIGRAM
     Route: 041
     Dates: start: 20180707
  30. HEPARIN [Concomitant]
     Active Substance: HEPARIN SODIUM
     Indication: THROMBOSIS PROPHYLAXIS
     Dosage: 3 MILLILITER
     Route: 065
     Dates: start: 20180622
  31. MAALOX ANTACID [Concomitant]
     Active Substance: ALUMINUM HYDROXIDE\DIMETHICONE\MAGNESIUM HYDROXIDE
     Indication: FLATULENCE
     Dosage: 15 MILLILITER
     Route: 048
     Dates: start: 20180622, end: 20180626
  32. ALTEPLASE. [Concomitant]
     Active Substance: ALTEPLASE
     Indication: THROMBOSIS PROPHYLAXIS
     Dosage: 2 MILLIGRAM
     Route: 065
     Dates: start: 20180701
  33. CUPRIC CHLORIDE. [Concomitant]
     Active Substance: CUPRIC CHLORIDE
     Indication: COPPER DEFICIENCY
     Dosage: 2 MILLIGRAM
     Route: 041
     Dates: start: 20180703, end: 20180703
  34. FENTANYL. [Concomitant]
     Active Substance: FENTANYL
     Dosage: 5-50 MCG
     Route: 041
     Dates: start: 20180707
  35. VENETOCLAX. [Concomitant]
     Active Substance: VENETOCLAX
     Indication: ACUTE MYELOID LEUKAEMIA
     Route: 065
  36. ALLOPURINOL. [Concomitant]
     Active Substance: ALLOPURINOL
     Indication: PROPHYLAXIS
     Dosage: 600 MILLIGRAM
     Route: 048
     Dates: start: 20180528, end: 20180603
  37. FLONASE [Concomitant]
     Active Substance: FLUTICASONE PROPIONATE
     Indication: RHINITIS ALLERGIC
     Route: 045
     Dates: start: 20170712
  38. MACROGOL 3350 [Concomitant]
     Active Substance: POLYETHYLENE GLYCOL 3350
     Indication: CONSTIPATION PROPHYLAXIS
     Dosage: 19 GRAM
     Route: 048
     Dates: start: 20180705
  39. OXYCODONE [Concomitant]
     Active Substance: OXYCODONE
     Indication: PAIN
     Dosage: 5 MILLIGRAM
     Route: 048
     Dates: start: 20180706, end: 20180706
  40. AZACITIDINE. [Suspect]
     Active Substance: AZACITIDINE
     Indication: ACUTE MYELOID LEUKAEMIA
     Dosage: 75 MILLIGRAM/SQ. METER
     Route: 041
     Dates: start: 20180529, end: 20180703
  41. TYLENOL [Concomitant]
     Active Substance: ACETAMINOPHEN
     Indication: PAIN PROPHYLAXIS
     Dosage: 500 MILLIGRAM
     Route: 048
     Dates: start: 20180201

REACTIONS (3)
  - Acute respiratory failure [Unknown]
  - Pneumonia [Recovered/Resolved]
  - Pneumonia [Fatal]

NARRATIVE: CASE EVENT DATE: 20180619
